FAERS Safety Report 21773844 (Version 1)
Quarter: 2022Q4

REPORT INFORMATION
  Report Type: Spontaneous
  Country: US (occurrence: None)
  Receive Date: 20221222
  Receipt Date: 20221222
  Transmission Date: 20230112
  Serious: Yes (Hospitalization)
  Sender: FDA-Public Use
  Company Number: None

PATIENT
  Age: 28 Year
  Sex: Female

DRUGS (1)
  1. HUMIRA [Suspect]
     Active Substance: ADALIMUMAB
     Indication: Hidradenitis
     Dosage: OTHER QUANTITY : 40MG/0.4ML ;?FREQUENCY : WEEKLY;?
     Route: 058
     Dates: start: 20210929

REACTIONS (4)
  - Hidradenitis [None]
  - Condition aggravated [None]
  - Antibiotic prophylaxis [None]
  - Discomfort [None]

NARRATIVE: CASE EVENT DATE: 20221219
